FAERS Safety Report 15057852 (Version 5)
Quarter: 2019Q1

REPORT INFORMATION
  Report Type: Report from Study
  Country: BR (occurrence: BR)
  Receive Date: 20180625
  Receipt Date: 20190222
  Transmission Date: 20190417
  Serious: Yes (Other)
  Sender: FDA-Public Use
  Company Number: BR-ROCHE-2136950

PATIENT
  Age: 60 Year
  Sex: Female
  Weight: 83 kg

DRUGS (3)
  1. XOLAIR [Suspect]
     Active Substance: OMALIZUMAB
     Dosage: 300 MG, EVERY 4 WEEKS
     Route: 058
     Dates: start: 20180515
  2. XOLAIR [Suspect]
     Active Substance: OMALIZUMAB
     Indication: URTICARIA
     Dosage: 2 DF (300 MG), QMO
     Route: 058
     Dates: start: 201805
  3. XOLAIR [Suspect]
     Active Substance: OMALIZUMAB
     Dosage: 2 DF, QMO
     Route: 058
     Dates: start: 201807

REACTIONS (23)
  - Hypertension [Not Recovered/Not Resolved]
  - Influenza [Recovering/Resolving]
  - Root canal infection [Not Recovered/Not Resolved]
  - Pharyngitis [Not Recovered/Not Resolved]
  - Liver disorder [Recovered/Resolved]
  - Urinary tract infection [Recovered/Resolved]
  - Abdominal pain [Not Recovered/Not Resolved]
  - Erythema [Not Recovered/Not Resolved]
  - Varicophlebitis [Recovering/Resolving]
  - Bedridden [Recovered/Resolved]
  - Nervousness [Not Recovered/Not Resolved]
  - Pain [Recovered/Resolved]
  - Malaise [Recovered/Resolved]
  - Peripheral swelling [Not Recovered/Not Resolved]
  - Weight decreased [Not Recovered/Not Resolved]
  - Nausea [Recovered/Resolved]
  - Palpitations [Not Recovered/Not Resolved]
  - Gastrointestinal pain [Recovered/Resolved]
  - Memory impairment [Not Recovered/Not Resolved]
  - Tremor [Not Recovered/Not Resolved]
  - Dizziness [Not Recovered/Not Resolved]
  - Diabetes mellitus [Not Recovered/Not Resolved]
  - Gastritis [Recovered/Resolved]

NARRATIVE: CASE EVENT DATE: 20180530
